FAERS Safety Report 14290898 (Version 2)
Quarter: 2018Q1

REPORT INFORMATION
  Report Type: Spontaneous
  Country: AU (occurrence: AU)
  Receive Date: 20171215
  Receipt Date: 20180110
  Transmission Date: 20180509
  Serious: Yes (Death)
  Sender: FDA-Public Use
  Company Number: AU-JNJFOC-20171215513

PATIENT
  Age: 40 Year
  Sex: Female

DRUGS (2)
  1. EVITHROM [Suspect]
     Active Substance: THROMBIN HUMAN
     Indication: HAEMOSTASIS
     Route: 015
     Dates: start: 2017
  2. FLOSEAL [Suspect]
     Active Substance: THROMBIN
     Indication: HAEMOSTASIS
     Route: 015
     Dates: start: 2017

REACTIONS (3)
  - Off label use [Unknown]
  - Pulmonary embolism [Fatal]
  - Haemorrhage [Unknown]

NARRATIVE: CASE EVENT DATE: 2017
